FAERS Safety Report 10430073 (Version 1)
Quarter: 2014Q3

REPORT INFORMATION
  Report Type: Spontaneous
  Country: US (occurrence: None)
  Receive Date: 20140902
  Receipt Date: 20140902
  Transmission Date: 20150326
  Serious: Yes (Hospitalization)
  Sender: FDA-Public Use
  Company Number: None

PATIENT
  Age: 79 Year
  Sex: Male

DRUGS (15)
  1. FUROSEMIDE. [Concomitant]
     Active Substance: FUROSEMIDE
  2. AMLODIPINE [Concomitant]
     Active Substance: AMLODIPINE BESYLATE
  3. K-TABS [Concomitant]
  4. FERROUS SULFATE [Concomitant]
     Active Substance: FERROUS SULFATE\FERROUS SULFATE, DRIED
  5. REVLIMID [Suspect]
     Active Substance: LENALIDOMIDE
     Indication: PLASMA CELL MYELOMA
     Route: 048
     Dates: start: 20140607
  6. HYDROCODONE/ACETAMINOPHEN [Concomitant]
     Active Substance: ACETAMINOPHEN\HYDROCODONE
  7. TAMSULOSIN [Concomitant]
     Active Substance: TAMSULOSIN
  8. DOXYCYCLINE. [Concomitant]
     Active Substance: DOXYCYCLINE
  9. DILTIAZEM [Concomitant]
     Active Substance: DILTIAZEM
  10. CEFUROXIME. [Concomitant]
     Active Substance: CEFUROXIME
  11. GLIPIZIDE. [Concomitant]
     Active Substance: GLIPIZIDE
  12. SIMVASTATIN. [Concomitant]
     Active Substance: SIMVASTATIN
  13. REVLIMID [Suspect]
     Active Substance: LENALIDOMIDE
     Route: 048
     Dates: start: 20140204, end: 20140606
  14. HYDRALAZINE [Concomitant]
     Active Substance: HYDRALAZINE HYDROCHLORIDE
  15. WARFARIN [Concomitant]
     Active Substance: WARFARIN

REACTIONS (7)
  - Asthenia [None]
  - Fatigue [None]
  - Decreased appetite [None]
  - Haemoptysis [None]
  - Dyspnoea [None]
  - Productive cough [None]
  - Pneumonia [None]

NARRATIVE: CASE EVENT DATE: 20140811
